FAERS Safety Report 5703128-9 (Version None)
Quarter: 2008Q2

REPORT INFORMATION
  Report Type: 
  Country: None (occurrence: None)
  Receive Date: 20080411
  Receipt Date: 20080331
  Transmission Date: 20081010
  Serious: Yes (Other)
  Sender: FDA-Public Use
  Company Number: US-PFIZER INC-2007092593

PATIENT
  Sex: Male
  Weight: 85 kg

DRUGS (4)
  1. CHANTIX [Suspect]
     Indication: SMOKING CESSATION THERAPY
     Route: 048
  2. ALBUTEROL [Concomitant]
  3. ADVAIR HFA [Concomitant]
  4. COMBIVENT [Concomitant]

REACTIONS (3)
  - AGGRESSION [None]
  - ANGER [None]
  - DYSPNOEA [None]
